FAERS Safety Report 11460178 (Version 1)
Quarter: 2015Q3

REPORT INFORMATION
  Report Type: Spontaneous
  Country: US (occurrence: US)
  Receive Date: 20150904
  Receipt Date: 20150904
  Transmission Date: 20151125
  Serious: Yes (Hospitalization)
  Sender: FDA-Public Use
  Company Number: US-CELGENEUS-USA-2015085449

PATIENT
  Sex: Male
  Weight: 93.07 kg

DRUGS (2)
  1. THALOMID [Suspect]
     Active Substance: THALIDOMIDE
     Route: 048
     Dates: start: 201505, end: 201508
  2. THALOMID [Suspect]
     Active Substance: THALIDOMIDE
     Indication: UPPER GASTROINTESTINAL HAEMORRHAGE
     Route: 048
     Dates: start: 201503

REACTIONS (2)
  - Drug ineffective [Not Recovered/Not Resolved]
  - Gastrointestinal haemorrhage [Not Recovered/Not Resolved]

NARRATIVE: CASE EVENT DATE: 2015
